FAERS Safety Report 8862207 (Version 1)
Quarter: 2012Q4

REPORT INFORMATION
  Report Type: 
  Country: US (occurrence: US)
  Receive Date: 20121026
  Receipt Date: 20121026
  Transmission Date: 20130627
  Serious: No
  Sender: FDA-Public Use
  Company Number: US-TEVA-366814USA

PATIENT

DRUGS (1)
  1. FENTORA [Suspect]
     Route: 002

REACTIONS (1)
  - Drug ineffective [Unknown]
